FAERS Safety Report 8061190-5 (Version None)
Quarter: 2012Q1

REPORT INFORMATION
  Report Type: 
  Country: None (occurrence: None)
  Receive Date: 20120120
  Receipt Date: 20120111
  Transmission Date: 20120608
  Serious: Yes (Disabling)
  Sender: FDA-Public Use
  Company Number: CA-ASTRAZENECA-2011SE75536

PATIENT
  Age: 63 Year
  Sex: Female

DRUGS (2)
  1. SYMBICORT [Suspect]
     Indication: ASTHMA
     Dosage: 200 MCG, 2 INHALATIONS TWICE DAILY, TOTAL DAILY DOSE 800 MCG
     Route: 055
     Dates: start: 20060307, end: 20111206
  2. SPIRIVA [Concomitant]
     Dosage: } 3 YEARS

REACTIONS (2)
  - DRUG INEFFECTIVE [None]
  - RESPIRATORY DISORDER [None]
